FAERS Safety Report 5471417-1 (Version None)
Quarter: 2007Q3

REPORT INFORMATION
  Report Type: 
  Country: None (occurrence: None)
  Receive Date: 20070928
  Receipt Date: 20061010
  Transmission Date: 20080115
  Serious: No
  Sender: FDA-Public Use
  Company Number: US-BRISTOL-MYERS SQUIBB COMPANY-13536909

PATIENT
  Age: 71 Year
  Sex: Male
  Weight: 113 kg

DRUGS (7)
  1. DEFINITY [Suspect]
     Indication: STRESS ECHOCARDIOGRAM
     Dosage: DEFINITY 2CC (1.3CC OF DEFINITY IN 8.7CC OF NORMAL SALINE)
     Route: 042
     Dates: start: 20061010, end: 20061010
  2. SODIUM CHLORIDE [Concomitant]
     Indication: STRESS ECHOCARDIOGRAM
     Route: 042
     Dates: start: 20061010, end: 20061010
  3. ALLOPURINOL [Concomitant]
  4. TOPROL-XL [Concomitant]
  5. DIGOXIN [Concomitant]
  6. LASIX [Concomitant]
  7. INSULIN [Concomitant]

REACTIONS (1)
  - BACK PAIN [None]
